FAERS Safety Report 12188748 (Version 1)
Quarter: 2016Q1

REPORT INFORMATION
  Report Type: Spontaneous
  Country: DE (occurrence: DE)
  Receive Date: 20160317
  Receipt Date: 20160317
  Transmission Date: 20160526
  Serious: Yes (Hospitalization)
  Sender: FDA-Public Use
  Company Number: DE-AMGEN-DEUSP2016032748

PATIENT
  Age: 77 Year
  Sex: Female

DRUGS (2)
  1. PROLIA [Suspect]
     Active Substance: DENOSUMAB
     Indication: OSTEOPOROTIC FRACTURE
     Dosage: 60 MG, UNK
     Route: 065
     Dates: start: 20151209
  2. CALCIUM VERLA [Concomitant]
     Dosage: 600 MG, UNK
     Route: 048

REACTIONS (3)
  - Circumstance or information capable of leading to medication error [Recovered/Resolved]
  - Treatment noncompliance [Recovered/Resolved]
  - Hypocalcaemia [Recovered/Resolved]

NARRATIVE: CASE EVENT DATE: 20160121
